FAERS Safety Report 9131434 (Version 1)
Quarter: 2013Q1

REPORT INFORMATION
  Report Type: Report from Study
  Country: US (occurrence: US)
  Receive Date: 20130301
  Receipt Date: 20130301
  Transmission Date: 20140127
  Serious: No
  Sender: FDA-Public Use
  Company Number: US-MYLANLABS-2012S1004599

PATIENT
  Age: 50 Year
  Sex: Male
  Weight: 80 kg

DRUGS (6)
  1. AMNESTEEM CAPSULES [Suspect]
     Indication: ACNE
     Route: 048
     Dates: start: 201111
  2. AMNESTEEM CAPSULES [Suspect]
     Indication: ACNE
     Route: 048
     Dates: end: 201202
  3. HYDROCHLOROTHIAZIDE [Concomitant]
  4. PROAIR /00139502/ [Concomitant]
  5. FIORICET [Concomitant]
  6. LORAZEPAM [Concomitant]

REACTIONS (1)
  - Cough [Recovered/Resolved]
